FAERS Safety Report 5099932-3 (Version None)
Quarter: 2006Q3

REPORT INFORMATION
  Report Type: 
  Country: None (occurrence: None)
  Receive Date: 20060906
  Receipt Date: 20060823
  Transmission Date: 20061208
  Serious: Yes (Other)
  Sender: FDA-Public Use
  Company Number: 2006US001848

PATIENT
  Age: 40 Year
  Sex: Male

DRUGS (1)
  1. PROTOPIC [Suspect]
     Indication: PSORIASIS
     Dosage: TOPICAL
     Route: 061

REACTIONS (1)
  - SQUAMOUS CELL CARCINOMA OF SKIN [None]
